FAERS Safety Report 9308607 (Version 1)
Quarter: 2013Q2

REPORT INFORMATION
  Report Type: Spontaneous
  Country: US (occurrence: US)
  Receive Date: 20130524
  Receipt Date: 20130524
  Transmission Date: 20140414
  Serious: No
  Sender: FDA-Public Use
  Company Number: US-TEVA-407428USA

PATIENT
  Age: 84 Year
  Sex: Female
  Weight: 71.73 kg

DRUGS (2)
  1. PROAIR HFA [Suspect]
     Indication: ASTHMA
     Dates: start: 20130508
  2. SYRUP [Concomitant]
     Indication: RHINORRHOEA

REACTIONS (3)
  - Wheezing [Not Recovered/Not Resolved]
  - Drug ineffective [Unknown]
  - Cough [Unknown]
